FAERS Safety Report 24082860 (Version 2)
Quarter: 2024Q3

REPORT INFORMATION
  Report Type: Spontaneous
  Country: US (occurrence: US)
  Receive Date: 20240712
  Receipt Date: 20240807
  Transmission Date: 20241016
  Serious: Yes (Other)
  Sender: AUROBINDO
  Company Number: US-AUROBINDO-AUR-APL-2024-033463

PATIENT
  Age: 7 Decade
  Sex: Male

DRUGS (7)
  1. PREDNISONE [Suspect]
     Active Substance: PREDNISONE
     Indication: Rash
     Dosage: 60 MILLIGRAM, DAILY
     Route: 048
  2. PREDNISONE [Suspect]
     Active Substance: PREDNISONE
     Indication: Optic neuritis
  3. PREDNISONE [Suspect]
     Active Substance: PREDNISONE
     Indication: Retinitis
  4. PREDNISONE [Suspect]
     Active Substance: PREDNISONE
     Indication: Headache
  5. DAPSONE [Concomitant]
     Active Substance: DAPSONE
     Indication: Rash
     Dosage: 50 MILLIGRAM, DAILY
     Route: 065
  6. MYCOPHENOLATE MOFETIL [Concomitant]
     Active Substance: MYCOPHENOLATE MOFETIL
     Indication: Product used for unknown indication
     Dosage: UNK
     Route: 065
  7. CEFTRIAXONE [Concomitant]
     Active Substance: CEFTRIAXONE\CEFTRIAXONE SODIUM
     Indication: Product used for unknown indication
     Route: 065

REACTIONS (5)
  - Optic neuritis [Unknown]
  - Retinitis [Unknown]
  - Medication overuse headache [Unknown]
  - Rash [Unknown]
  - Rebound effect [Unknown]
